FAERS Safety Report 4448339-8 (Version None)
Quarter: 2004Q3

REPORT INFORMATION
  Report Type: 
  Country: None (occurrence: None)
  Receive Date: 20040909
  Receipt Date: 20040823
  Transmission Date: 20050211
  Serious: Yes (Hospitalization)
  Sender: FDA-Public Use
  Company Number: AU_040808001

PATIENT
  Age: 79 Year
  Sex: Male

DRUGS (11)
  1. FORTEO [Suspect]
     Indication: OSTEOPOROSIS
     Dosage: 20 UG
     Dates: start: 20040708
  2. MORPHINE [Concomitant]
  3. PREDNISOLONE [Concomitant]
  4. SPIRIVA [Concomitant]
  5. FLIXOTIDE(FLUTICASONE PROPIONATE) [Concomitant]
  6. VENTOLIN (SALBUTAMOL SULFATE) [Concomitant]
  7. CALTRATE (CALCIUM CARBONATE) [Concomitant]
  8. TESTOSTERONE [Concomitant]
  9. LOSEC (OMEPRAZOLE MAGNESIUM) [Concomitant]
  10. OXYGEN [Concomitant]
  11. ASMOL (SALBUTAMOL SULFATE) [Concomitant]

REACTIONS (4)
  - CHEST WALL PAIN [None]
  - EMPHYSEMA [None]
  - LOWER RESPIRATORY TRACT INFECTION [None]
  - PAIN EXACERBATED [None]
